FAERS Safety Report 10416425 (Version 2)
Quarter: 2014Q3

REPORT INFORMATION
  Report Type: Spontaneous
  Country: US (occurrence: US)
  Receive Date: 20140828
  Receipt Date: 20140828
  Transmission Date: 20150326
  Serious: Yes (Hospitalization)
  Sender: FDA-Public Use
  Company Number: US-GLAXOSMITHKLINE-A0784419A

PATIENT
  Sex: Male
  Weight: 97.7 kg

DRUGS (16)
  1. GLARGINE [Concomitant]
     Dates: start: 2006
  2. ECOTRIN [Concomitant]
     Active Substance: ASPIRIN
  3. GLIPIZIDE. [Concomitant]
     Active Substance: GLIPIZIDE
     Dosage: 10MG TWICE PER DAY
     Dates: start: 2004
  4. FOSINOPRIL [Concomitant]
     Active Substance: FOSINOPRIL
     Indication: HYPERTENSION
  5. INSULIN [Concomitant]
     Active Substance: INSULIN NOS
     Dosage: 40U PER DAY
     Dates: start: 2006
  6. BYETTA [Concomitant]
     Active Substance: EXENATIDE
     Dosage: 10MG PER DAY
     Dates: start: 200610, end: 200712
  7. FUROSEMIDE. [Concomitant]
     Active Substance: FUROSEMIDE
     Dates: start: 200703
  8. GLUCOPHAGE [Concomitant]
     Active Substance: METFORMIN HYDROCHLORIDE
     Dates: start: 1992, end: 2004
  9. LANTUS [Concomitant]
     Active Substance: INSULIN GLARGINE
     Dates: start: 2006
  10. ASPIRIN. [Concomitant]
     Active Substance: ASPIRIN
  11. PREDNISONE. [Concomitant]
     Active Substance: PREDNISONE
     Dates: start: 200608
  12. AVANDIA [Suspect]
     Active Substance: ROSIGLITAZONE MALEATE
     Indication: TYPE 2 DIABETES MELLITUS
     Dosage: 8MG TWICE PER DAY
     Dates: start: 200103, end: 200705
  13. ZETIA [Concomitant]
     Active Substance: EZETIMIBE
     Dates: start: 200705
  14. METFORMIN [Concomitant]
     Active Substance: METFORMIN HYDROCHLORIDE
     Dosage: 500MG PER DAY
     Dates: start: 2004
  15. METOPROLOL [Concomitant]
     Active Substance: METOPROLOL
     Dates: start: 1995
  16. SIMVASTATIN. [Concomitant]
     Active Substance: SIMVASTATIN
     Dates: start: 200706

REACTIONS (7)
  - Cardiac failure congestive [Unknown]
  - Chronic obstructive pulmonary disease [Unknown]
  - Cardiac disorder [Unknown]
  - Myocardial infarction [Unknown]
  - Haemorrhage [Unknown]
  - Dyspnoea [Unknown]
  - Oedema [Unknown]
